FAERS Safety Report 4538272-5 (Version None)
Quarter: 2004Q4

REPORT INFORMATION
  Report Type: 
  Country: None (occurrence: None)
  Receive Date: 20041221
  Receipt Date: 20041213
  Transmission Date: 20050328
  Serious: Yes (Life-Threatening)
  Sender: FDA-Public Use
  Company Number: 2004AP06243

PATIENT
  Age: 35 Year
  Sex: Male

DRUGS (1)
  1. SEROQUEL [Suspect]
     Dosage: 1200 MG DAILY PO
     Route: 048
     Dates: start: 20010101

REACTIONS (3)
  - CARDIOMYOPATHY [None]
  - ENDOCARDITIS [None]
  - MYOCARDITIS [None]
